FAERS Safety Report 4825220-3 (Version None)
Quarter: 2005Q4

REPORT INFORMATION
  Report Type: 
  Country: None (occurrence: None)
  Receive Date: 20051109
  Receipt Date: 20051101
  Transmission Date: 20060501
  Serious: Yes (Death)
  Sender: FDA-Public Use
  Company Number: 430003E05DEU

PATIENT
  Age: 47 Year
  Sex: Female

DRUGS (5)
  1. MITOXANTRONE [Suspect]
     Indication: ACUTE MYELOID LEUKAEMIA
     Dosage: 17.6 MG, 1 IN 1 DAYS, INTRAVENOUS
     Route: 042
     Dates: start: 20041223, end: 20041224
  2. GEMTUZUMAB OZOGAMICIN [Suspect]
     Indication: ACUTE MYELOID LEUKAEMIA
     Dosage: 4.9 MG, 1 IN 1 DAYS, INTRAVENOUS
     Route: 042
     Dates: start: 20041222, end: 20041222
  3. CYTARABINE [Suspect]
     Indication: ACUTE MYELOID LEUKAEMIA
     Dosage: 8.8 MG, 1 IN 1 DAYS, INTRAVENOUS
     Route: 042
     Dates: start: 20041222, end: 20041224
  4. TRETINOIN [Suspect]
     Indication: ACUTE MYELOID LEUKAEMIA
     Dosage: SEE IMAGE
     Route: 048
     Dates: start: 20041225, end: 20041227
  5. TRETINOIN [Suspect]
     Indication: ACUTE MYELOID LEUKAEMIA
     Dosage: SEE IMAGE
     Route: 048
     Dates: start: 20041228, end: 20050118

REACTIONS (1)
  - BACTERIAL SEPSIS [None]
